FAERS Safety Report 18829597 (Version 1)
Quarter: 2021Q1

REPORT INFORMATION
  Report Type: Spontaneous
  Country: US (occurrence: US)
  Receive Date: 20210201
  Receipt Date: 20210201
  Transmission Date: 20210419
  Serious: Yes (Hospitalization)
  Sender: FDA-Public Use
  Company Number: US-ABBVIE-20K-163-3594208-00

PATIENT
  Age: 59 Year
  Sex: Female
  Weight: 79.45 kg

DRUGS (3)
  1. RESTASIS [Concomitant]
     Active Substance: CYCLOSPORINE
     Indication: UVEITIS
  2. HUMIRA [Suspect]
     Active Substance: ADALIMUMAB
     Indication: UVEITIS
     Route: 058
     Dates: start: 2016, end: 20200614
  3. HUMIRA [Suspect]
     Active Substance: ADALIMUMAB
     Route: 058
     Dates: start: 202008

REACTIONS (4)
  - Wrong technique in product usage process [Unknown]
  - Human anaplasmosis [Recovered/Resolved]
  - Lyme disease [Recovered/Resolved]
  - Device leakage [Unknown]

NARRATIVE: CASE EVENT DATE: 20200628
